FAERS Safety Report 23709836 (Version 2)
Quarter: 2024Q2

REPORT INFORMATION
  Report Type: Report from Study
  Country: KR (occurrence: KR)
  Receive Date: 20240405
  Receipt Date: 20240408
  Transmission Date: 20240716
  Serious: Yes (Hospitalization)
  Sender: FDA-Public Use
  Company Number: KR-ABBVIE-5704780

PATIENT
  Age: 77 Year
  Sex: Female
  Weight: 63 kg

DRUGS (31)
  1. VENCLEXTA [Suspect]
     Active Substance: VENETOCLAX
     Indication: Acute myeloid leukaemia
     Route: 048
     Dates: start: 20240229, end: 20240313
  2. VENCLEXTA [Suspect]
     Active Substance: VENETOCLAX
     Indication: Acute myeloid leukaemia
     Route: 048
     Dates: start: 20240228, end: 20240228
  3. VENCLEXTA [Suspect]
     Active Substance: VENETOCLAX
     Indication: Acute myeloid leukaemia
     Route: 048
     Dates: start: 20240227, end: 20240227
  4. VENCLEXTA [Suspect]
     Active Substance: VENETOCLAX
     Indication: Acute myeloid leukaemia
     Route: 048
     Dates: start: 20240226, end: 20240226
  5. VENCLEXTA [Suspect]
     Active Substance: VENETOCLAX
     Indication: Acute myeloid leukaemia
     Route: 048
     Dates: start: 20240321
  6. METOCLOPRAMIDE HYDROCHLORIDE [Concomitant]
     Active Substance: METOCLOPRAMIDE HYDROCHLORIDE
     Indication: Nausea
     Dosage: TIME INTERVAL: AS NECESSARY
     Route: 048
     Dates: start: 20240228, end: 20240229
  7. JARDIANCE [Concomitant]
     Active Substance: EMPAGLIFLOZIN
     Indication: Diabetes mellitus
     Dosage: 10 MG
     Route: 048
  8. BENFOREX [Concomitant]
     Indication: Vitamin supplementation
     Route: 048
     Dates: start: 20240223
  9. NOXAFIL [Concomitant]
     Active Substance: POSACONAZOLE
     Indication: Infection prophylaxis
     Dosage: GASTRO RESISTANT TAB 100MG
     Route: 048
     Dates: start: 20240228
  10. DACOGEN [Concomitant]
     Active Substance: DECITABINE
     Indication: Acute myeloid leukaemia
     Dosage: DOSE- 32.8MG
     Route: 042
     Dates: start: 20240226, end: 20240301
  11. EZETIMIBE [Concomitant]
     Active Substance: EZETIMIBE
     Indication: Coronary artery disease
     Route: 048
  12. ANAPROX [Concomitant]
     Active Substance: NAPROXEN SODIUM
     Indication: Pain prophylaxis
     Dosage: TIME INTERVAL: AS NECESSARY: 275MG
     Route: 048
     Dates: start: 20240402
  13. Sinil folic acid [Concomitant]
     Indication: Vitamin supplementation
     Route: 048
     Dates: start: 20240223
  14. LEVOKACIN [Concomitant]
     Indication: Bronchopulmonary aspergillosis
     Dosage: 750 MG
     Route: 048
     Dates: start: 20240327
  15. PREGREL [Concomitant]
     Indication: Coronary artery disease
     Route: 048
  16. VASTINAN MR [Concomitant]
     Indication: Coronary artery disease
     Dosage: 35 MG
     Route: 048
  17. AMINO ACIDS\DEXTROSE\ELECTROLYTES NOS\SOYBEAN OIL\VITAMINS [Concomitant]
     Active Substance: AMINO ACIDS\DEXTROSE\ELECTROLYTES NOS\SOYBEAN OIL\VITAMINS
     Indication: Nutritional supplementation
     Route: 042
     Dates: start: 20240313, end: 20240327
  18. VFEND [Concomitant]
     Active Substance: VORICONAZOLE
     Indication: Bronchopulmonary aspergillosis
     Dosage: 200 MG
     Route: 048
     Dates: start: 20240327
  19. VFEND [Concomitant]
     Active Substance: VORICONAZOLE
     Indication: Bronchopulmonary aspergillosis
     Dosage: 200 MG
     Route: 048
     Dates: start: 20240223, end: 20240227
  20. KANARB [Concomitant]
     Indication: Hypertension
     Dosage: 30 MG
     Route: 048
  21. DILTIAZEM HYDROCHLORIDE [Concomitant]
     Active Substance: DILTIAZEM HYDROCHLORIDE
     Indication: Hypertension
     Dosage: RETARD TAB 90MG
     Route: 048
  22. LEVOFLOXACIN [Concomitant]
     Active Substance: LEVOFLOXACIN
     Indication: Infection prophylaxis
     Dosage: 500MG
     Route: 048
     Dates: start: 20240224
  23. METFORMIN HYDROCHLORIDE [Concomitant]
     Active Substance: METFORMIN HYDROCHLORIDE
     Indication: Diabetes mellitus
     Route: 048
  24. K CAB [Concomitant]
     Indication: Prophylaxis
     Route: 048
     Dates: start: 20240328, end: 20240402
  25. TRAMADOL HCL A [Concomitant]
     Indication: Pain in extremity
     Route: 042
     Dates: start: 20240321, end: 20240327
  26. PREDNISOLONE [Concomitant]
     Active Substance: PREDNISOLONE
     Indication: Bronchopulmonary aspergillosis
     Route: 048
     Dates: start: 20240328, end: 20240402
  27. LIPITOR [Concomitant]
     Active Substance: ATORVASTATIN CALCIUM
     Indication: Dyslipidaemia
     Dosage: 20 MG
     Route: 048
  28. BASPO [Concomitant]
     Indication: Injection site extravasation
     Dosage: TIME INTERVAL: AS NECESSARY
     Route: 062
     Dates: start: 20240321, end: 20240328
  29. NEBISTOL [Concomitant]
     Indication: Hypertension
     Route: 048
  30. LASIX [Concomitant]
     Active Substance: FUROSEMIDE
     Indication: Prophylaxis
     Dosage: TIME INTERVAL: AS NECESSARY
     Route: 048
     Dates: start: 20240402
  31. METOCLOPRAMIDE HYDROCHLORIDE [Concomitant]
     Active Substance: METOCLOPRAMIDE HYDROCHLORIDE
     Indication: Nausea
     Dosage: TIME INTERVAL: AS NECESSARY: MACPERAN INJ 2ML
     Route: 042
     Dates: start: 20240315, end: 20240328

REACTIONS (1)
  - Bronchopulmonary aspergillosis [Recovered/Resolved]

NARRATIVE: CASE EVENT DATE: 20240312
